FAERS Safety Report 10880995 (Version 1)
Quarter: 2015Q1

REPORT INFORMATION
  Report Type: Spontaneous
  Country: US (occurrence: None)
  Receive Date: 20150225
  Receipt Date: 20150225
  Transmission Date: 20150721
  Serious: Yes (Hospitalization)
  Sender: FDA-Public Use
  Company Number: None

PATIENT
  Age: 54 Year
  Sex: Female
  Weight: 90.72 kg

DRUGS (12)
  1. TIZANIDINE (TIZANIDINE) [Concomitant]
     Active Substance: TIZANIDINE
  2. ASPIRIN. [Concomitant]
     Active Substance: ASPIRIN
  3. VITAMIN D3 [Concomitant]
     Active Substance: CHOLECALCIFEROL
  4. VICTOZA [Suspect]
     Active Substance: LIRAGLUTIDE
     Indication: DIABETES MELLITUS
     Route: 058
     Dates: start: 20120828, end: 20150206
  5. CITALOPRAM [Concomitant]
     Active Substance: CITALOPRAM HYDROBROMIDE
  6. FISH OIL [Concomitant]
     Active Substance: FISH OIL
  7. BUPROPRION [Concomitant]
     Active Substance: BUPROPION
  8. COENZYME Q10 [Concomitant]
     Active Substance: UBIDECARENONE
  9. NADOLOL. [Concomitant]
     Active Substance: NADOLOL
  10. MAGNESIUM [Concomitant]
     Active Substance: MAGNESIUM
  11. NEXIUM [Concomitant]
     Active Substance: ESOMEPRAZOLE MAGNESIUM
  12. VAGIFEM [Concomitant]
     Active Substance: ESTRADIOL

REACTIONS (4)
  - Amylase increased [None]
  - Diarrhoea [None]
  - Abdominal pain [None]
  - Dehydration [None]

NARRATIVE: CASE EVENT DATE: 20150210
